FAERS Safety Report 4530196-2 (Version None)
Quarter: 2004Q4

REPORT INFORMATION
  Report Type: 
  Country: None (occurrence: None)
  Receive Date: 20041217
  Receipt Date: 20041208
  Transmission Date: 20050328
  Serious: Yes (Hospitalization)
  Sender: FDA-Public Use
  Company Number: 200414629FR

PATIENT
  Age: 79 Year
  Sex: Female
  Weight: 63 kg

DRUGS (4)
  1. RIFADIN [Suspect]
     Indication: CERVICAL GLAND TUBERCULOSIS
     Route: 048
     Dates: start: 20041108, end: 20041108
  2. MYAMBUTOL [Concomitant]
     Dates: start: 20040826, end: 20040914
  3. RIMIFON [Concomitant]
     Dates: start: 20040826, end: 20040914
  4. PIRILENE [Concomitant]
     Dates: start: 20040826, end: 20041106

REACTIONS (18)
  - ABDOMINAL PAIN [None]
  - ARTHRALGIA [None]
  - CHEST PAIN [None]
  - DIARRHOEA [None]
  - ERYTHEMA [None]
  - FACE OEDEMA [None]
  - HEADACHE [None]
  - HYPOTENSION [None]
  - MALAISE [None]
  - MYALGIA [None]
  - PARAESTHESIA [None]
  - PYREXIA [None]
  - RASH [None]
  - SENSORY DISTURBANCE [None]
  - SWELLING FACE [None]
  - TRANSAMINASES INCREASED [None]
  - VERTIGO [None]
  - XANTHOPSIA [None]
